FAERS Safety Report 14688032 (Version 3)
Quarter: 2018Q2

REPORT INFORMATION
  Report Type: Spontaneous
  Country: US (occurrence: US)
  Receive Date: 20180328
  Receipt Date: 20180411
  Transmission Date: 20180711
  Serious: No
  Sender: FDA-Public Use
  Company Number: US-PFIZER INC-2017244589

PATIENT
  Age: 14 Year
  Sex: Male

DRUGS (2)
  1. GENOTROPIN [Suspect]
     Active Substance: SOMATROPIN
     Indication: GROWTH HORMONE DEFICIENCY
     Dosage: 1.9 MG, DAILY
     Dates: start: 201703
  2. GENOTROPIN [Suspect]
     Active Substance: SOMATROPIN
     Dosage: 2.1 MG, DAILY
     Dates: start: 201703

REACTIONS (3)
  - Intentional product misuse [Unknown]
  - Drug prescribing error [Unknown]
  - Nausea [Unknown]
